FAERS Safety Report 9228255 (Version 1)
Quarter: 2013Q2

REPORT INFORMATION
  Report Type: Spontaneous
  Country: US (occurrence: None)
  Receive Date: 20130411
  Receipt Date: 20130411
  Transmission Date: 20140414
  Serious: No
  Sender: FDA-Public Use
  Company Number: None

PATIENT
  Age: 35 Year
  Sex: Female
  Weight: 61.24 kg

DRUGS (1)
  1. BUPROPION [Suspect]
     Indication: DEPRESSION
     Dosage: 75MG  1 X DAY  PO
     Route: 048
     Dates: start: 20120525, end: 20120629

REACTIONS (4)
  - Hypersensitivity [None]
  - Product substitution issue [None]
  - Product quality issue [None]
  - Product formulation issue [None]
